FAERS Safety Report 9311846 (Version 2)
Quarter: 2013Q2

REPORT INFORMATION
  Report Type: Report from Study
  Country: AU (occurrence: AU)
  Receive Date: 20130528
  Receipt Date: 20130610
  Transmission Date: 20140414
  Serious: Yes (Hospitalization)
  Sender: FDA-Public Use
  Company Number: PHHY2013AU052883

PATIENT
  Age: 82 Year
  Sex: Male

DRUGS (2)
  1. ACLASTA [Suspect]
     Indication: OSTEOPOROSIS
     Dosage: 5 MG, YEARLY
     Route: 042
     Dates: start: 20120530
  2. ACLASTA [Suspect]
     Dosage: ONLY 20 ML OF ACLASTA
     Route: 042
     Dates: start: 20130524

REACTIONS (4)
  - Chest pain [Recovering/Resolving]
  - Device occlusion [Unknown]
  - Device difficult to use [Recovering/Resolving]
  - Underdose [Recovering/Resolving]
